FAERS Safety Report 20923253 (Version 3)
Quarter: 2023Q2

REPORT INFORMATION
  Report Type: Report from Study
  Country: US (occurrence: US)
  Receive Date: 20220607
  Receipt Date: 20230411
  Transmission Date: 20230721
  Serious: Yes (Other)
  Sender: FDA-Public Use
  Company Number: US-MYLANLABS-2022M1041441

PATIENT
  Sex: Female
  Weight: 68.03 kg

DRUGS (1)
  1. GLATIRAMER ACETATE [Suspect]
     Active Substance: GLATIRAMER ACETATE
     Indication: Multiple sclerosis
     Dosage: 40 MILLIGRAM, 3XW
     Route: 058

REACTIONS (8)
  - Multiple sclerosis [Unknown]
  - Muscular weakness [Unknown]
  - Injection site erythema [Unknown]
  - Injection site pain [Unknown]
  - Injection site rash [Unknown]
  - Drug hypersensitivity [Unknown]
  - Injection site swelling [Unknown]
  - Injection site vesicles [Unknown]
